FAERS Safety Report 18920585 (Version 1)
Quarter: 2021Q1

REPORT INFORMATION
  Report Type: Spontaneous
  Country: US (occurrence: US)
  Receive Date: 20210222
  Receipt Date: 20210222
  Transmission Date: 20210420
  Serious: No
  Sender: FDA-Public Use
  Company Number: US-SA-2021SA057982

PATIENT
  Sex: Female

DRUGS (2)
  1. DUPIXENT [Suspect]
     Active Substance: DUPILUMAB
     Indication: DERMATITIS ATOPIC
     Dosage: 300 MG, QOW
     Route: 058
  2. DOXEPIN [Suspect]
     Active Substance: DOXEPIN
     Dosage: UNK UNK, HS
     Dates: start: 20210105

REACTIONS (3)
  - Pruritus [Unknown]
  - Somnolence [Unknown]
  - Feeling drunk [Unknown]
